FAERS Safety Report 17115113 (Version 1)
Quarter: 2019Q4

REPORT INFORMATION
  Report Type: Spontaneous
  Country: US (occurrence: US)
  Receive Date: 20191205
  Receipt Date: 20191205
  Transmission Date: 20200122
  Serious: No
  Sender: FDA-Public Use
  Company Number: US-GW PHARMA-201911USGW4134

PATIENT

DRUGS (3)
  1. EPIDIOLEX [Suspect]
     Active Substance: CANNABIDIOL
     Indication: PRODUCT USED FOR UNKNOWN INDICATION
     Dosage: 20 MILLIGRAM, BID
     Route: 048
     Dates: start: 2019, end: 2019
  2. EPIDIOLEX [Suspect]
     Active Substance: CANNABIDIOL
     Dosage: 20 MILLIGRAM, BID
     Route: 048
     Dates: start: 2019
  3. EPIDIOLEX [Suspect]
     Active Substance: CANNABIDIOL
     Dosage: 40 MILLIGRAM, BID
     Route: 048
     Dates: start: 2019, end: 2019

REACTIONS (5)
  - Tongue movement disturbance [Recovered/Resolved]
  - Product use issue [Not Recovered/Not Resolved]
  - Product physical consistency issue [Unknown]
  - Infantile spitting up [Recovered/Resolved]
  - Product odour abnormal [Unknown]

NARRATIVE: CASE EVENT DATE: 2019
